FAERS Safety Report 5741733-4 (Version None)
Quarter: 2008Q2

REPORT INFORMATION
  Report Type: 
  Country: None (occurrence: None)
  Receive Date: 20080519
  Receipt Date: 20061229
  Transmission Date: 20081010
  Serious: No
  Sender: FDA-Public Use
  Company Number: US-BAYER-US-2006-041016

PATIENT
  Sex: Female

DRUGS (1)
  1. ULTRAVIST 300 [Suspect]
     Indication: COMPUTERISED TOMOGRAM
     Dosage: UNIT DOSE: 150 ML
     Dates: start: 20061228, end: 20061228

REACTIONS (4)
  - LOCAL SWELLING [None]
  - MALAISE [None]
  - SWELLING FACE [None]
  - URTICARIA [None]
